FAERS Safety Report 10855230 (Version 1)
Quarter: 2015Q1

REPORT INFORMATION
  Report Type: Report from Study
  Country: US (occurrence: US)
  Receive Date: 20150223
  Receipt Date: 20150223
  Transmission Date: 20150721
  Serious: Yes (Death)
  Sender: FDA-Public Use
  Company Number: US-SA-2014SA132011

PATIENT
  Age: 41 Year
  Sex: Female

DRUGS (2)
  1. NEURONTIN [Concomitant]
     Active Substance: GABAPENTIN
  2. AUBAGIO [Suspect]
     Active Substance: TERIFLUNOMIDE
     Indication: MULTIPLE SCLEROSIS
     Route: 048
     Dates: start: 20140825, end: 20150107

REACTIONS (8)
  - Dysgeusia [Unknown]
  - Visual impairment [Unknown]
  - Nasal congestion [Unknown]
  - Malaise [Unknown]
  - Rhinorrhoea [Unknown]
  - Influenza [Unknown]
  - Hypoaesthesia [Unknown]
  - Death [Fatal]

NARRATIVE: CASE EVENT DATE: 20141020
